FAERS Safety Report 15735842 (Version 2)
Quarter: 2019Q1

REPORT INFORMATION
  Report Type: Spontaneous
  Country: US (occurrence: US)
  Receive Date: 20181218
  Receipt Date: 20190306
  Transmission Date: 20190417
  Serious: Yes (Other)
  Sender: FDA-Public Use
  Company Number: PHEH2018US052989

PATIENT
  Age: 65 Year
  Sex: Male

DRUGS (1)
  1. TASIGNA [Suspect]
     Active Substance: NILOTINIB
     Indication: CHRONIC MYELOID LEUKAEMIA
     Dosage: 2 DF, BID
     Route: 048
     Dates: start: 2010, end: 201802

REACTIONS (15)
  - Diverticulum [Unknown]
  - Haemorrhoids [Unknown]
  - Diabetes mellitus [Unknown]
  - Abdominal abscess [Unknown]
  - Cardiovascular disorder [Unknown]
  - Intestinal ischaemia [Unknown]
  - Coronary artery disease [Unknown]
  - Chronic kidney disease [Unknown]
  - Osteoarthritis [Unknown]
  - Peripheral arterial occlusive disease [Unknown]
  - Peripheral vascular disorder [Unknown]
  - Cholelithiasis [Unknown]
  - Sjogren^s syndrome [Unknown]
  - Hypertension [Unknown]
  - Rhinitis allergic [Unknown]

NARRATIVE: CASE EVENT DATE: 20131213
